FAERS Safety Report 9874522 (Version 1)
Quarter: 2014Q1

REPORT INFORMATION
  Report Type: Spontaneous
  Country: US (occurrence: US)
  Receive Date: 20140206
  Receipt Date: 20140206
  Transmission Date: 20141002
  Serious: No
  Sender: FDA-Public Use
  Company Number: US-BIOGENIDEC-2014BI011906

PATIENT
  Sex: Female

DRUGS (11)
  1. AVONEX [Suspect]
     Indication: MULTIPLE SCLEROSIS
     Route: 030
     Dates: start: 19991001
  2. AVONEX [Suspect]
     Indication: MULTIPLE SCLEROSIS
     Route: 030
     Dates: start: 20130226
  3. CENTRUM ULTRA WOMENS [Concomitant]
  4. OMEGA 3 [Concomitant]
  5. OXYBUTYNIN CHLORIDE [Concomitant]
  6. OXYCODONE HCL [Concomitant]
  7. PERCOCET [Concomitant]
  8. VALIUM [Concomitant]
  9. VITAMIN B12 [Concomitant]
  10. VITAMIN D [Concomitant]
  11. VITAMIN E [Concomitant]

REACTIONS (3)
  - Polyarthritis [Not Recovered/Not Resolved]
  - Gait disturbance [Not Recovered/Not Resolved]
  - Arthritis [Unknown]
